FAERS Safety Report 21208635 (Version 2)
Quarter: 2022Q3

REPORT INFORMATION
  Report Type: Spontaneous
  Country: AU (occurrence: AU)
  Receive Date: 20220812
  Receipt Date: 20220829
  Transmission Date: 20221026
  Serious: Yes (Other)
  Sender: FDA-Public Use
  Company Number: AU-TEVA-2022-AU-2064394

PATIENT
  Age: 22 Year
  Sex: Male

DRUGS (3)
  1. OCTREOTIDE [Suspect]
     Active Substance: OCTREOTIDE
     Indication: Hyperinsulinaemic hypoglycaemia
     Dosage: 600 MICROGRAM DAILY;
     Route: 058
  2. VERAPAMIL [Suspect]
     Active Substance: VERAPAMIL HYDROCHLORIDE
     Indication: Hyperinsulinaemic hypoglycaemia
     Dosage: 160 MILLIGRAM DAILY;
     Route: 048
  3. DIAZOXIDE [Suspect]
     Active Substance: DIAZOXIDE
     Indication: Hyperinsulinaemic hypoglycaemia
     Dosage: 300 MILLIGRAM DAILY;
     Route: 048

REACTIONS (2)
  - Weight increased [Recovering/Resolving]
  - Drug ineffective [Unknown]

NARRATIVE: CASE EVENT DATE: 20180101
